FAERS Safety Report 21911165 (Version 1)
Quarter: 2023Q1

REPORT INFORMATION
  Report Type: Spontaneous
  Country: US (occurrence: US)
  Receive Date: 20230125
  Receipt Date: 20230125
  Transmission Date: 20230418
  Serious: No
  Sender: FDA-Public Use
  Company Number: US-ALLERGAN-2209648US

PATIENT

DRUGS (4)
  1. BOTOX [Suspect]
     Active Substance: ONABOTULINUMTOXINA
     Indication: Skin wrinkling
     Dosage: UNK UNK, SINGLE
     Route: 058
     Dates: start: 20220315, end: 20220315
  2. BOTOX [Suspect]
     Active Substance: ONABOTULINUMTOXINA
     Indication: Skin wrinkling
     Dosage: UNK UNK, SINGLE
     Route: 058
     Dates: start: 20220315, end: 20220315
  3. BACTERIOSTATIC WATER [Suspect]
     Active Substance: WATER
     Indication: Skin wrinkling
     Dosage: UNK UNK, SINGLE
     Route: 058
     Dates: start: 20220315, end: 20220315
  4. BACTERIOSTATIC WATER [Suspect]
     Active Substance: WATER
     Indication: Skin wrinkling
     Dosage: UNK UNK, SINGLE
     Route: 058
     Dates: start: 20220315, end: 20220315

REACTIONS (4)
  - Product preparation error [Unknown]
  - Periorbital oedema [Not Recovered/Not Resolved]
  - Swelling face [Not Recovered/Not Resolved]
  - Pain [Not Recovered/Not Resolved]

NARRATIVE: CASE EVENT DATE: 20220315
